FAERS Safety Report 4864228-9 (Version None)
Quarter: 2005Q4

REPORT INFORMATION
  Report Type: 
  Country: None (occurrence: None)
  Receive Date: 20051222
  Receipt Date: 20051212
  Transmission Date: 20060501
  Serious: Yes (Hospitalization)
  Sender: FDA-Public Use
  Company Number: PL-SANOFI-SYNTHELABO-A01200508637

PATIENT
  Age: 50 Year
  Sex: Female

DRUGS (7)
  1. CLOPIDOGREL [Suspect]
     Indication: CORONARY ANGIOPLASTY
  2. CLOPIDOGREL [Suspect]
     Indication: STENT PLACEMENT
  3. SIMVASTATIN [Suspect]
     Dosage: UNK
  4. METHYLPREDNISOLONE [Concomitant]
     Indication: SYSTEMIC LUPUS ERYTHEMATOSUS
     Dosage: 16 MG
     Route: 065
     Dates: start: 19750101
  5. ASPIRIN [Concomitant]
     Indication: DRUG USE FOR UNKNOWN INDICATION
     Dosage: UNK
     Route: 065
  6. METOPROLOL [Concomitant]
     Indication: DRUG USE FOR UNKNOWN INDICATION
     Dosage: UNK
     Route: 065
  7. TRANDOLAPRIL [Concomitant]
     Indication: DRUG USE FOR UNKNOWN INDICATION
     Dosage: UNK
     Route: 065

REACTIONS (12)
  - ANAEMIA [None]
  - ASTHENIA [None]
  - DISSEMINATED INTRAVASCULAR COAGULATION [None]
  - ECCHYMOSIS [None]
  - EPISTAXIS [None]
  - HEPATOCELLULAR DAMAGE [None]
  - LEUKOPENIA [None]
  - MYALGIA [None]
  - NAUSEA [None]
  - NEUTROPENIA [None]
  - THROMBOTIC THROMBOCYTOPENIC PURPURA [None]
  - VOMITING [None]
